FAERS Safety Report 14909118 (Version 1)
Quarter: 2018Q2

REPORT INFORMATION
  Report Type: Spontaneous
  Country: US (occurrence: US)
  Receive Date: 20180430
  Receipt Date: 20180430
  Transmission Date: 20180711
  Serious: Yes (Disabling)
  Sender: FDA-Public Use
  Company Number: None

PATIENT
  Age: 72 Year
  Sex: Female
  Weight: 66.6 kg

DRUGS (16)
  1. TYLENOL [Concomitant]
     Active Substance: ACETAMINOPHEN
  2. LORATADINE. [Concomitant]
     Active Substance: LORATADINE
  3. GABAPENTIN. [Concomitant]
     Active Substance: GABAPENTIN
  4. STOOL SOFTENER (DOCUSATE) [Concomitant]
     Active Substance: DOCUSATE
  5. MULTI-VITAMIN [Concomitant]
     Active Substance: .ALPHA.-TOCOPHEROL ACETATE, DL-\ASCORBIC ACID\CYANOCOBALAMIN\FLUORIDE ION\FOLIC ACID\NIACIN\PYRIDOXINE\RIBOFLAVIN\THIAMINE\VITAMIN A\VITAMIN D
  6. TURMERI [Concomitant]
  7. BIOTIN [Concomitant]
     Active Substance: BIOTIN
  8. MAGNESIUM [Concomitant]
     Active Substance: MAGNESIUM
  9. TIMOLOL EYE DROPS [Concomitant]
  10. ABILIFY [Concomitant]
     Active Substance: ARIPIPRAZOLE
  11. VITAMIN D [Concomitant]
     Active Substance: CHOLECALCIFEROL
  12. OMEGA 3 LUTIEN [Concomitant]
  13. CALCIUM [Concomitant]
     Active Substance: CALCIUM
  14. GABAPENTIN. [Suspect]
     Active Substance: GABAPENTIN
     Indication: NEUROPATHY PERIPHERAL
     Dosage: ?          QUANTITY:1 CAPSULE(S);?
     Route: 048
  15. VITAMIN B COMPLEX [Concomitant]
     Active Substance: CYANOCOBALAMIN\DEXPANTHENOL\NIACINAMIDE\PYRIDOXINE HYDROCHLORIDE\RIBOFLAVIN 5^-PHOSPHATE SODIUM\THIAMINE HYDROCHLORIDE\VITAMIN B COMPLEX
  16. LAVENDER [Concomitant]
     Active Substance: ALCOHOL

REACTIONS (19)
  - Gait disturbance [None]
  - Insomnia [None]
  - Blood glucose increased [None]
  - Coordination abnormal [None]
  - Headache [None]
  - Peripheral swelling [None]
  - Impulsive behaviour [None]
  - Somnolence [None]
  - Visual impairment [None]
  - Depression [None]
  - Rash [None]
  - Dry mouth [None]
  - Weight increased [None]
  - Diarrhoea [None]
  - Vision blurred [None]
  - Anxiety [None]
  - Confusional state [None]
  - Diplopia [None]
  - Constipation [None]

NARRATIVE: CASE EVENT DATE: 20180429
